FAERS Safety Report 7815525 (Version 2)
Quarter: 2013Q2

REPORT INFORMATION
  Report Type: Report from Study
  Country: MX (occurrence: MX)
  Receive Date: 20110216
  Receipt Date: 20130528
  Transmission Date: 20140414
  Serious: Yes (Other)
  Sender: FDA-Public Use
  Company Number: PHHY2011MX10979

PATIENT
  Age: 83 Year
  Sex: Female

DRUGS (2)
  1. GALVUS [Suspect]
     Indication: DIABETES MELLITUS
     Dosage: 50 MG, QD
     Dates: start: 20100511
  2. EXELON PATCH [Suspect]
     Indication: MEMORY IMPAIRMENT
     Dosage: 4.6 MG (5 CM2) UNK
     Route: 062

REACTIONS (5)
  - Arthropathy [Recovering/Resolving]
  - Gait disturbance [Recovering/Resolving]
  - Condition aggravated [Recovering/Resolving]
  - Memory impairment [Recovering/Resolving]
  - Insomnia [Recovering/Resolving]
